FAERS Safety Report 7312982-9 (Version None)
Quarter: 2011Q1

REPORT INFORMATION
  Report Type: 
  Country: None (occurrence: None)
  Receive Date: 20110224
  Receipt Date: 20110210
  Transmission Date: 20110831
  Serious: Yes (Hospitalization)
  Sender: FDA-Public Use
  Company Number: TR-MYLANLABS-2011S1003075

PATIENT
  Age: 72 Year
  Sex: Female

DRUGS (3)
  1. METHYLPREDNISOLONE [Concomitant]
     Indication: RHEUMATOID ARTHRITIS
     Route: 065
  2. HYDROXYCHLOROQUINE [Suspect]
     Indication: RHEUMATOID ARTHRITIS
     Route: 065
  3. LEFLUNOMIDE [Concomitant]
     Indication: RHEUMATOID ARTHRITIS

REACTIONS (2)
  - BLOOD CORTISOL DECREASED [None]
  - HYPOGLYCAEMIA [None]
